FAERS Safety Report 18597850 (Version 1)
Quarter: 2020Q4

REPORT INFORMATION
  Report Type: Spontaneous
  Country: US (occurrence: US)
  Receive Date: 20201209
  Receipt Date: 20201209
  Transmission Date: 20210114
  Serious: Yes (Other)
  Sender: FDA-Public Use
  Company Number: US-BEH-2020126069

PATIENT
  Sex: Female

DRUGS (1)
  1. PRIVIGEN [Suspect]
     Active Substance: HUMAN IMMUNOGLOBULIN G
     Indication: POLYMYOSITIS
     Dosage: 20 GRAM, QMT
     Route: 042
     Dates: start: 20200901

REACTIONS (4)
  - Off label use [Unknown]
  - Aphonia [Unknown]
  - Pharyngeal operation [Unknown]
  - No adverse event [Unknown]
